FAERS Safety Report 25276679 (Version 2)
Quarter: 2025Q2

REPORT INFORMATION
  Report Type: Spontaneous
  Country: BR (occurrence: BR)
  Receive Date: 20250507
  Receipt Date: 20250512
  Transmission Date: 20250716
  Serious: Yes (Other)
  Sender: ORGANON
  Company Number: BR-ORGANON-O2504BRA003058

PATIENT
  Age: 16 Year
  Sex: Female

DRUGS (3)
  1. ETONOGESTREL [Suspect]
     Active Substance: ETONOGESTREL
     Indication: Heavy menstrual bleeding
     Route: 059
     Dates: start: 20250415, end: 20250425
  2. ETONOGESTREL [Suspect]
     Active Substance: ETONOGESTREL
     Indication: Dysmenorrhoea
  3. PROPRANOLOL [Concomitant]
     Active Substance: PROPRANOLOL HYDROCHLORIDE

REACTIONS (8)
  - Haemorrhage [Recovered/Resolved]
  - Headache [Recovered/Resolved]
  - Implant site discolouration [Recovered/Resolved]
  - Pain in extremity [Recovered/Resolved]
  - Burning sensation [Recovered/Resolved]
  - Product use issue [Unknown]
  - Product use in unapproved indication [Unknown]
  - Product prescribing issue [Unknown]

NARRATIVE: CASE EVENT DATE: 20250101
